FAERS Safety Report 22214603 (Version 1)
Quarter: 2023Q2

REPORT INFORMATION
  Report Type: Spontaneous
  Country: US (occurrence: US)
  Receive Date: 20230415
  Receipt Date: 20230415
  Transmission Date: 20230722
  Serious: No
  Sender: FDA-Public Use
  Company Number: US-JNJFOC-20190712215

PATIENT
  Age: 69 Year
  Sex: Female
  Weight: 70.370 kg

DRUGS (2)
  1. IMODIUM MULTI-SYMPTOM RELIEF [Suspect]
     Active Substance: DIMETHICONE\LOPERAMIDE HYDROCHLORIDE
     Indication: Irritable bowel syndrome
     Dosage: 1 TO 2 CAPLETS WITH EACH USAGE ONCE TO TWICE A DAY - TWICE A WEEK - SOMETIMES MORE OFTEN
     Route: 048
     Dates: end: 20190703
  2. BENADRYL [Concomitant]
     Active Substance: DIPHENHYDRAMINE HYDROCHLORIDE
     Indication: Product used for unknown indication
     Route: 065

REACTIONS (5)
  - Dysphagia [Recovered/Resolved]
  - Taste disorder [Unknown]
  - Abdominal distension [Recovered/Resolved]
  - Constipation [Unknown]
  - Gastric disorder [Unknown]

NARRATIVE: CASE EVENT DATE: 20190703
